FAERS Safety Report 11195313 (Version 1)
Quarter: 2015Q2

REPORT INFORMATION
  Report Type: Spontaneous
  Country: UG (occurrence: None)
  Receive Date: 20150615
  Receipt Date: 20150615
  Transmission Date: 20150821
  Serious: No
  Sender: FDA-Public Use
  Company Number: UG2015GSK081247

PATIENT

DRUGS (2)
  1. LAMIVUDINE + ZIDOVUDINE (LAMIVUDINE, ZIDOVUDINE) [Suspect]
     Active Substance: LAMIVUDINE\ZIDOVUDINE
     Indication: HIV INFECTION
  2. NEVIRAPINE (NEVIRAPINE) [Suspect]
     Active Substance: NEVIRAPINE
     Indication: HIV INFECTION

REACTIONS (3)
  - Rash [None]
  - Skin exfoliation [None]
  - Ulcer [None]
